FAERS Safety Report 5329226-X (Version None)
Quarter: 2007Q2

REPORT INFORMATION
  Report Type: 
  Country: None (occurrence: None)
  Receive Date: 20070518
  Receipt Date: 20070507
  Transmission Date: 20071010
  Serious: Yes (Other)
  Sender: FDA-Public Use
  Company Number: US-PFIZER INC-2007037129

PATIENT
  Sex: Female

DRUGS (1)
  1. BEXTRA [Suspect]
     Dates: start: 20040201, end: 20041101

REACTIONS (1)
  - RETINAL VEIN OCCLUSION [None]
